FAERS Safety Report 4561500-7 (Version None)
Quarter: 2005Q1

REPORT INFORMATION
  Report Type: 
  Country: None (occurrence: None)
  Receive Date: 20050121
  Receipt Date: 20030520
  Transmission Date: 20050727
  Serious: Yes (Hospitalization)
  Sender: FDA-Public Use
  Company Number: 200308523

PATIENT
  Age: 42 Year
  Sex: Female

DRUGS (1)
  1. TAZORAC [Suspect]
     Indication: SKIN WRINKLING

REACTIONS (2)
  - DRUG EXPOSURE DURING PREGNANCY [None]
  - PREMATURE LABOUR [None]
